FAERS Safety Report 8451862 (Version 3)
Quarter: 2012Q4

REPORT INFORMATION
  Report Type: 
  Country: FR (occurrence: FR)
  Receive Date: 20120309
  Receipt Date: 20121101
  Transmission Date: 20130627
  Serious: Yes (Hospitalization, Other)
  Sender: FDA-Public Use
  Company Number: FR-CUBIST-2012S1000241

PATIENT
  Age: 12 Year
  Sex: Female
  Weight: 40.5 kg

DRUGS (25)
  1. CUBICIN [Suspect]
     Indication: SEPSIS
     Dosage: Dose unit:U UNKNOWN
     Route: 042
     Dates: start: 20120101
  2. METHOTREXATE [Suspect]
     Indication: PRODUCT USED FOR UNKNOWN INDICATION
     Dosage: Dose unit:17
     Route: 042
     Dates: start: 20111021, end: 20111104
  3. VP-16 [Suspect]
     Indication: PRODUCT USED FOR UNKNOWN INDICATION
     Route: 042
     Dates: start: 20111116
  4. ZOLEDRONATE [Suspect]
     Indication: BONE SARCOMA
     Route: 042
     Dates: start: 20111024
  5. IFOSFAMIDE [Suspect]
     Indication: PRODUCT USED FOR UNKNOWN INDICATION
     Route: 042
     Dates: start: 20111116
  6. ENDOXAN [Suspect]
     Indication: PRODUCT USED FOR UNKNOWN INDICATION
     Route: 065
     Dates: start: 20111129, end: 20111230
  7. ALL OTHER THERAPEUTIC PRODUCTS [Concomitant]
     Indication: PRODUCT USED FOR UNKNOWN INDICATION
     Dosage: Dose unit:U UNKNOWN
     Route: 065
  8. SKENAN [Concomitant]
     Indication: PRODUCT USED FOR UNKNOWN INDICATION
     Dosage: Dose unit:U UNKNOWN
     Route: 065
  9. ATARAX /00595201/ [Concomitant]
     Indication: PRODUCT USED FOR UNKNOWN INDICATION
     Dosage: Dose unit:U UNKNOWN
     Route: 065
  10. UROMITEXAN [Concomitant]
     Indication: PRODUCT USED FOR UNKNOWN INDICATION
     Dosage: Dose unit:U UNKNOWN
     Route: 065
  11. PERFALGAN [Concomitant]
     Indication: PRODUCT USED FOR UNKNOWN INDICATION
     Dosage: Dose unit:U UNKNOWN
     Route: 065
  12. AZANTAC [Concomitant]
     Indication: PRODUCT USED FOR UNKNOWN INDICATION
     Dosage: Dose unit:U UNKNOWN
     Route: 065
  13. TAZOCILLINE [Concomitant]
     Indication: PRODUCT USED FOR UNKNOWN INDICATION
     Dosage: Dose unit:U UNKNOWN
     Route: 065
     Dates: end: 20120105
  14. ALL OTHER THERAPEUTIC PRODUCTS [Concomitant]
     Indication: PRODUCT USED FOR UNKNOWN INDICATION
     Dosage: Dose unit:U UNKNOWN
     Route: 065
  15. TARGOCID [Concomitant]
     Indication: PRODUCT USED FOR UNKNOWN INDICATION
     Dosage: Dose unit:U UNKNOWN
     Route: 065
     Dates: end: 20120110
  16. VANCOMYCIN [Concomitant]
     Indication: PRODUCT USED FOR UNKNOWN INDICATION
     Route: 065
  17. GENTAMICIN [Concomitant]
     Indication: PRODUCT USED FOR UNKNOWN INDICATION
     Dosage: Dose unit:U UNKNOWN
     Route: 065
  18. LURIDE [Concomitant]
     Indication: PRODUCT USED FOR UNKNOWN INDICATION
     Dosage: Dose unit:U UNKNOWN
     Route: 065
  19. ZYVOXID [Concomitant]
     Indication: PRODUCT USED FOR UNKNOWN INDICATION
     Route: 065
  20. PLITICAN [Concomitant]
     Indication: PRODUCT USED FOR UNKNOWN INDICATION
     Dosage: Dose unit:U UNKNOWN
     Route: 065
  21. CALCIUM FOLINATE [Concomitant]
     Indication: PRODUCT USED FOR UNKNOWN INDICATION
     Dosage: Dose unit:U UNKNOWN
     Route: 065
  22. CALCIUM [Concomitant]
     Indication: PRODUCT USED FOR UNKNOWN INDICATION
     Dosage: Dose unit:U UNKNOWN
     Route: 065
  23. PHOSPHORUS [Concomitant]
     Indication: PRODUCT USED FOR UNKNOWN INDICATION
     Dosage: Dose unit:U UNKNOWN
     Route: 065
  24. ERGOCALCIFEROL [Concomitant]
     Indication: PRODUCT USED FOR UNKNOWN INDICATION
     Dosage: Dose unit:U UNKNOWN
     Route: 065
  25. VITAMIN D NOS [Concomitant]
     Indication: PRODUCT USED FOR UNKNOWN INDICATION
     Route: 065

REACTIONS (4)
  - Toxicity to various agents [Recovered/Resolved]
  - Sepsis [Recovered/Resolved]
  - Drug interaction [Unknown]
  - Hypocalcaemia [Recovered/Resolved]
